FAERS Safety Report 9013588 (Version 1)
Quarter: 2013Q1

REPORT INFORMATION
  Report Type: Spontaneous
  Country: US (occurrence: US)
  Receive Date: 20130115
  Receipt Date: 20130115
  Transmission Date: 20140127
  Serious: Yes (Other)
  Sender: FDA-Public Use
  Company Number: PHEH2013US001127

PATIENT
  Sex: Male

DRUGS (5)
  1. EXELON PATCH [Suspect]
     Indication: DEMENTIA ALZHEIMER^S TYPE
     Dosage: 4.6 MG, DAILY
     Route: 062
  2. EXELON PATCH [Suspect]
     Dosage: 9.5 MG, DAILY
     Route: 062
  3. SEROQUEL [Concomitant]
  4. METFORMIN [Concomitant]
  5. UROXATRAL [Concomitant]

REACTIONS (4)
  - Paranoia [Unknown]
  - Hallucination [Unknown]
  - Cognitive disorder [Unknown]
  - Agitation [Unknown]
